FAERS Safety Report 7958378-8 (Version None)
Quarter: 2011Q4

REPORT INFORMATION
  Report Type: 
  Country: None (occurrence: None)
  Receive Date: 20111205
  Receipt Date: 20111126
  Transmission Date: 20120403
  Serious: No
  Sender: FDA-Public Use
  Company Number: US-B.I. PHARMACEUTICALS,INC./RIDGEFIELD-2011-BP-26864BP

PATIENT
  Sex: Male

DRUGS (8)
  1. TRAZODONE HCL [Concomitant]
     Indication: STRESS
  2. SOMA [Concomitant]
     Indication: MUSCLE SPASMS
     Route: 048
  3. DICYCLOMINE [Concomitant]
     Indication: ABDOMINAL DISCOMFORT
  4. MICARDIS [Suspect]
     Indication: HYPERTENSION
     Dosage: 80 MG
     Route: 048
     Dates: start: 20111116
  5. MICARDIS [Suspect]
     Indication: CEREBROVASCULAR ACCIDENT PROPHYLAXIS
  6. CLONAZEPAM [Suspect]
     Indication: STRESS
     Dates: start: 20031126
  7. VALTREX [Concomitant]
     Indication: HERPES VIRUS INFECTION
  8. TRAZODONE HCL [Concomitant]
     Indication: INSOMNIA

REACTIONS (3)
  - PHOTOPSIA [None]
  - HALLUCINATION [None]
  - BLOOD PRESSURE INCREASED [None]
